FAERS Safety Report 25144502 (Version 2)
Quarter: 2025Q2

REPORT INFORMATION
  Report Type: Spontaneous
  Country: US (occurrence: US)
  Receive Date: 20250401
  Receipt Date: 20250502
  Transmission Date: 20250717
  Serious: Yes (Hospitalization)
  Sender: REGENERON
  Company Number: US-REGENERON PHARMACEUTICALS, INC.-2025-055855

PATIENT
  Sex: Male

DRUGS (3)
  1. PRALUENT [Suspect]
     Active Substance: ALIROCUMAB
     Indication: Hyperlipidaemia
     Dosage: 150 MG, Q2W (EVERY TWO WEEKS) (STRENGTH: 150 MG/ML)
     Route: 058
     Dates: end: 202501
  2. PRALUENT [Suspect]
     Active Substance: ALIROCUMAB
     Dosage: 150 MG, Q2W (EVERY TWO WEEKS) (STRENGTH: 150 MG/ML)
     Route: 058
     Dates: start: 20250327
  3. INSULIN NOS [Concomitant]
     Active Substance: INSULIN NOS
     Indication: Product used for unknown indication
     Dates: start: 1990

REACTIONS (2)
  - Hypotension [Unknown]
  - Urinary tract infection [Unknown]
